FAERS Safety Report 8003794-1 (Version None)
Quarter: 2011Q4

REPORT INFORMATION
  Report Type: 
  Country: None (occurrence: None)
  Receive Date: 20111222
  Receipt Date: 20111220
  Transmission Date: 20120403
  Serious: No
  Sender: FDA-Public Use
  Company Number: US-BAYER-2011-122823

PATIENT
  Age: 25 Year
  Sex: Male
  Weight: 96 kg

DRUGS (1)
  1. ALEVE (CAPLET) [Suspect]
     Indication: TOOTHACHE
     Dosage: UNK
     Route: 048
     Dates: end: 20111220

REACTIONS (6)
  - NO ADVERSE EVENT [None]
  - ABDOMINAL DISTENSION [None]
  - NAUSEA [None]
  - CHILLS [None]
  - DIARRHOEA [None]
  - FEELING COLD [None]
